FAERS Safety Report 4373238-X (Version None)
Quarter: 2004Q2

REPORT INFORMATION
  Report Type: 
  Country: None (occurrence: None)
  Receive Date: 20040608
  Receipt Date: 20040604
  Transmission Date: 20050107
  Serious: Yes (Congenital Anomaly)
  Sender: FDA-Public Use
  Company Number: US-GLAXOSMITHKLINE-A0513561A

PATIENT

DRUGS (1)
  1. ZOFRAN [Suspect]
     Indication: PROPHYLAXIS OF NAUSEA AND VOMITING
     Dosage: 8MG PER DAY

REACTIONS (3)
  - AMBLYOPIA [None]
  - DRUG EXPOSURE DURING PREGNANCY [None]
  - TOE DEFORMITY [None]
